FAERS Safety Report 6318337-8 (Version None)
Quarter: 2009Q3

REPORT INFORMATION
  Report Type: 
  Country: None (occurrence: None)
  Receive Date: 20090821
  Receipt Date: 20090722
  Transmission Date: 20100115
  Serious: Yes (Hospitalization)
  Sender: FDA-Public Use
  Company Number: JP-MERCK-0907USA04889

PATIENT
  Age: 41 Year
  Sex: Female

DRUGS (1)
  1. PEPCID [Suspect]
     Route: 048
     Dates: start: 20080101

REACTIONS (1)
  - EOSINOPHILIC PNEUMONIA [None]
